FAERS Safety Report 7564515-X (Version None)
Quarter: 2011Q2

REPORT INFORMATION
  Report Type: 
  Country: None (occurrence: None)
  Receive Date: 20110622
  Receipt Date: 20101202
  Transmission Date: 20111010
  Serious: Yes (Other)
  Sender: FDA-Public Use
  Company Number: US-MYLANLABS-2009S1018934

PATIENT
  Age: 41 Year
  Sex: Female

DRUGS (8)
  1. OSCAL /00108001/ [Concomitant]
  2. CLOZAPINE [Suspect]
     Route: 048
     Dates: start: 20090901, end: 20100428
  3. DEPAKOTE ER [Concomitant]
  4. CLOZAPINE [Suspect]
     Indication: SCHIZOAFFECTIVE DISORDER
     Dates: start: 20090901, end: 20100428
  5. MULTI-VITAMIN [Concomitant]
  6. CLOZAPINE [Suspect]
     Route: 048
     Dates: start: 20100430
  7. CYMBALTA [Concomitant]
  8. CLOZAPINE [Suspect]
     Dates: start: 20100430

REACTIONS (2)
  - LEUKOPENIA [None]
  - GRANULOCYTOPENIA [None]
